FAERS Safety Report 17565533 (Version 2)
Quarter: 2020Q2

REPORT INFORMATION
  Report Type: Spontaneous
  Country: US (occurrence: US)
  Receive Date: 20200320
  Receipt Date: 20200527
  Transmission Date: 20200713
  Serious: No
  Sender: FDA-Public Use
  Company Number: US-PFIZER INC-2020120813

PATIENT
  Age: 61 Year
  Sex: Female

DRUGS (19)
  1. FISH OIL [Concomitant]
     Active Substance: FISH OIL
     Dosage: UNK (340-100)
  2. VITAMIN C [Concomitant]
     Active Substance: ASCORBIC ACID
     Dosage: 500 MG, UNK
  3. XGEVA [Concomitant]
     Active Substance: DENOSUMAB
     Dosage: UNK (120 MG/1.7 VIAL)
  4. MILK THISTLE [Concomitant]
     Active Substance: DIETARY SUPPLEMENT\HERBALS\MILK THISTLE
     Dosage: 175 MG, UNK
  5. XYZAL [Concomitant]
     Active Substance: LEVOCETIRIZINE DIHYDROCHLORIDE
     Dosage: 5 MG, UNK
  6. LOVASTATINE [Concomitant]
     Active Substance: LOVASTATIN
     Dosage: 10 MG, UNK
  7. VASCEPA [Concomitant]
     Active Substance: ICOSAPENT ETHYL
     Dosage: 1 G, UNK
  8. EFFEXOR XR [Concomitant]
     Active Substance: VENLAFAXINE HYDROCHLORIDE
     Dosage: 150 MG, UNK (150 MG CAPSULE SR 24H)
  9. IBRANCE [Suspect]
     Active Substance: PALBOCICLIB
     Dosage: 100 MG, 1 DAILY FOR 21 DAYS
     Route: 048
     Dates: start: 201912
  10. SALINE NASAL MIST [Concomitant]
     Dosage: UNK (0.65 %)
  11. LETROZOLE. [Concomitant]
     Active Substance: LETROZOLE
     Dosage: 2.5 MG, UNK
  12. ASTRAGALUS ROOT [Concomitant]
     Active Substance: HERBALS
     Dosage: UNK (ASTRAGALUS ROOT 100 %)
  13. ASPIRIN (E.C.) [Concomitant]
     Active Substance: ASPIRIN
     Dosage: 81 MG, UNK
  14. CITRUCEL [Concomitant]
     Active Substance: METHYLCELLULOSE (4000 MPA.S)
     Dosage: UNK
  15. CITRACAL + D [CALCIUM CITRATE;COLECALCIFEROL] [Concomitant]
     Active Substance: CALCIUM CITRATE\CHOLECALCIFEROL
     Dosage: 315 MG, UNK
  16. VITAMIN C [Concomitant]
     Active Substance: ASCORBIC ACID
     Dosage: 1000 MG, UNK
  17. PRILOSEC [Concomitant]
     Active Substance: OMEPRAZOLE MAGNESIUM
     Dosage: 20 MG, UNK (OTC 20 MG TABLET DR)
  18. IBRANCE [Suspect]
     Active Substance: PALBOCICLIB
     Indication: BREAST CANCER FEMALE
     Dosage: 125 MG, CYCLIC(1 DAILY 21 DAYS)
     Route: 048
     Dates: start: 201912
  19. MILK THISTLE [Concomitant]
     Active Substance: DIETARY SUPPLEMENT\HERBALS\MILK THISTLE
     Dosage: 140 MG, UNK

REACTIONS (1)
  - White blood cell count decreased [Recovered/Resolved]
